FAERS Safety Report 4652749-3 (Version None)
Quarter: 2005Q2

REPORT INFORMATION
  Report Type: 
  Country: None (occurrence: None)
  Receive Date: 20050503
  Receipt Date: 20050322
  Transmission Date: 20051028
  Serious: Yes (Death)
  Sender: FDA-Public Use
  Company Number: 2005S1001447

PATIENT
  Age: 58 Year
  Sex: Female
  Weight: 78.4723 kg

DRUGS (8)
  1. CLOZAPINE [Suspect]
     Dosage: 400 MG; BID; PO
     Route: 048
     Dates: start: 20021113, end: 20050301
  2. CLOZAPINE [Suspect]
     Dosage: 50 MG; Q24; PO
     Route: 048
     Dates: start: 20021113, end: 20050301
  3. BUPROPION HYDROCHLORIDE [Concomitant]
  4. CLONAZEPAM [Concomitant]
  5. FEXOFENADINE HYDROCHLORIDE [Concomitant]
  6. DOCUSATE SODIUM [Concomitant]
  7. LANSOPRAZOLE [Concomitant]
  8. METOCLOPRAMIDE HYDROCHLORIDE [Concomitant]

REACTIONS (3)
  - FAECAL INCONTINENCE [None]
  - LOSS OF CONSCIOUSNESS [None]
  - RESPIRATORY ARREST [None]
